FAERS Safety Report 13949076 (Version 1)
Quarter: 2017Q3

REPORT INFORMATION
  Report Type: Report from Study
  Country: SE (occurrence: SE)
  Receive Date: 20170908
  Receipt Date: 20170908
  Transmission Date: 20171128
  Serious: Yes (Death)
  Sender: FDA-Public Use
  Company Number: SE-TEVA-803093ROM

PATIENT
  Age: 55 Year
  Sex: Male

DRUGS (2)
  1. CITALOPRAM [Suspect]
     Active Substance: CITALOPRAM HYDROBROMIDE
     Route: 065
  2. LITHIUM. [Suspect]
     Active Substance: LITHIUM
     Route: 065

REACTIONS (7)
  - Gastrointestinal haemorrhage [Fatal]
  - Respiratory tract haemorrhage [Fatal]
  - Brain oedema [Fatal]
  - Cardiomegaly [Fatal]
  - Fibrosis [Fatal]
  - Toxicity to various agents [Fatal]
  - Lipomatosis [Fatal]
